FAERS Safety Report 18035727 (Version 1)
Quarter: 2020Q3

REPORT INFORMATION
  Report Type: Spontaneous
  Country: FR (occurrence: FR)
  Receive Date: 20200717
  Receipt Date: 20200717
  Transmission Date: 20201103
  Serious: Yes (Other)
  Sender: FDA-Public Use
  Company Number: FR-CADILA HEALTHCARE LIMITED-FR-ZYDUS-023105

PATIENT

DRUGS (7)
  1. FINASTERIDE. [Suspect]
     Active Substance: FINASTERIDE
     Indication: PRODUCT USED FOR UNKNOWN INDICATION
     Dosage: 5 MILLIGRAM,5 MG, QD,(INTERVAL :1 DAYS)
     Route: 065
     Dates: start: 20180428, end: 20180522
  2. FUMAFER [Suspect]
     Active Substance: FERROUS FUMARATE
     Indication: PRODUCT USED FOR UNKNOWN INDICATION
     Dosage: 1 DOSAGE FORM,1 DF, QD(66MG),(INTERVAL :1 DAYS)
     Route: 048
     Dates: start: 20180428
  3. FRAXIPARINE [Suspect]
     Active Substance: NADROPARIN CALCIUM
     Indication: PRODUCT USED FOR UNKNOWN INDICATION
     Dosage: 1 DOSAGE FORM,1 DF, QD,(INTERVAL :1 DAYS)
     Route: 058
     Dates: start: 20180430, end: 20180522
  4. TAMSULOSIN [Suspect]
     Active Substance: TAMSULOSIN
     Indication: PRODUCT USED FOR UNKNOWN INDICATION
     Dosage: .4 MILLIGRAM,(INTERVAL :1 DAYS)
     Route: 048
     Dates: start: 20180427
  5. SERESTA [Suspect]
     Active Substance: OXAZEPAM
     Indication: PRODUCT USED FOR UNKNOWN INDICATION
     Dosage: 10 MILLIGRAM,10 MG, TID(10 MG MORE IF NEEDED),(INTERVAL :1 DAYS)
     Route: 048
     Dates: start: 20180427
  6. TRIMEBUTINE [Suspect]
     Active Substance: TRIMEBUTINE
     Indication: PRODUCT USED FOR UNKNOWN INDICATION
     Dosage: 480 MILLIGRAM,(INTERVAL :1 DAYS)
     Route: 048
     Dates: start: 20180427, end: 20180522
  7. PHLOROGLUCINOL [Suspect]
     Active Substance: PHLOROGLUCINOL
     Indication: PRODUCT USED FOR UNKNOWN INDICATION
     Dosage: 240 MILLIGRAM,240 MG, QD,(INTERVAL :1 DAYS)
     Route: 048
     Dates: start: 20180427, end: 20180522

REACTIONS (1)
  - Pancytopenia [Not Recovered/Not Resolved]

NARRATIVE: CASE EVENT DATE: 20180522
